FAERS Safety Report 21000338 (Version 9)
Quarter: 2024Q2

REPORT INFORMATION
  Report Type: Spontaneous
  Country: US (occurrence: US)
  Receive Date: 20220623
  Receipt Date: 20240419
  Transmission Date: 20240715
  Serious: Yes (Hospitalization, Other)
  Sender: FDA-Public Use
  Company Number: US-PFIZER INC-PV202200008224

PATIENT
  Age: 83 Year
  Sex: Male
  Weight: 77.098 kg

DRUGS (12)
  1. VYNDAMAX [Suspect]
     Active Substance: TAFAMIDIS
     Indication: Cardiac amyloidosis
     Dosage: 61 MG, 1X/DAY
     Route: 048
     Dates: start: 2020
  2. VYNDAMAX [Suspect]
     Active Substance: TAFAMIDIS
     Indication: Amyloidosis
  3. APIXABAN [Concomitant]
     Active Substance: APIXABAN
     Dosage: 2.5 MG, 2X/DAY
     Dates: start: 202209
  4. JARDIANCE [Concomitant]
     Active Substance: EMPAGLIFLOZIN
     Dosage: 10 MG, DAILY
     Dates: start: 202209
  5. FUROSEMIDE [Concomitant]
     Active Substance: FUROSEMIDE
     Dosage: 40 MG, 1X/DAY
  6. FUROSEMIDE [Concomitant]
     Active Substance: FUROSEMIDE
     Dosage: 3 TIMES A WEEK
  7. INSULIN NOS [Concomitant]
     Active Substance: INSULIN NOS
     Dosage: 75/25 INSULIN PEN, 2X/DAY
     Dates: start: 202207
  8. METFORMIN [Concomitant]
     Active Substance: METFORMIN HYDROCHLORIDE
     Dosage: 750 MG
     Dates: end: 202303
  9. METOPROLOL SUCCINATE [Concomitant]
     Active Substance: METOPROLOL SUCCINATE
     Dosage: 75 MG, 1X/DAY
  10. PRAMIPEXOLE DIHYDROCHLORIDE [Concomitant]
     Active Substance: PRAMIPEXOLE DIHYDROCHLORIDE
     Dosage: 0.125 MG, 2X/DAY
  11. JANUMET [Concomitant]
     Active Substance: METFORMIN HYDROCHLORIDE\SITAGLIPTIN PHOSPHATE
     Dosage: 50 MG
     Dates: end: 202209
  12. SIMVASTATIN [Concomitant]
     Active Substance: SIMVASTATIN
     Dosage: 40 MG, 1X/DAY

REACTIONS (11)
  - Acute kidney injury [Not Recovered/Not Resolved]
  - Fall [Recovered/Resolved]
  - Hip fracture [Recovered/Resolved]
  - Limb injury [Recovered/Resolved]
  - Joint injury [Recovered/Resolved]
  - Orthostatic hypotension [Recovered/Resolved]
  - Blood creatine increased [Not Recovered/Not Resolved]
  - Memory impairment [Not Recovered/Not Resolved]
  - Condition aggravated [Not Recovered/Not Resolved]
  - Weight decreased [Recovering/Resolving]
  - Balance disorder [Unknown]

NARRATIVE: CASE EVENT DATE: 20220621
